FAERS Safety Report 14939078 (Version 1)
Quarter: 2018Q2

REPORT INFORMATION
  Report Type: Spontaneous
  Country: US (occurrence: US)
  Receive Date: 20180525
  Receipt Date: 20180525
  Transmission Date: 20180711
  Serious: No
  Sender: FDA-Public Use
  Company Number: US-PFIZER INC-2018213357

PATIENT
  Age: 40 Year
  Sex: Male

DRUGS (3)
  1. ETOPOSIDE. [Suspect]
     Active Substance: ETOPOSIDE
     Indication: PROSTATE CANCER STAGE IV
     Dosage: UNK UNK, CYCLIC
     Dates: end: 20160922
  2. CISPLATIN. [Suspect]
     Active Substance: CISPLATIN
     Indication: PROSTATE CANCER STAGE IV
     Dosage: UNK UNK, CYCLIC
     Dates: end: 20160922
  3. TOPOTECAN HYDROCHLORIDE. [Suspect]
     Active Substance: TOPOTECAN HYDROCHLORIDE
     Indication: PROSTATE CANCER STAGE IV
     Dosage: UNK UNK, CYCLIC
     Dates: end: 20160922

REACTIONS (1)
  - Neoplasm progression [Unknown]
